FAERS Safety Report 4471629-X (Version None)
Quarter: 2004Q4

REPORT INFORMATION
  Report Type: 
  Country: None (occurrence: None)
  Receive Date: 20041012
  Receipt Date: 20041004
  Transmission Date: 20050328
  Serious: Yes (Other)
  Sender: FDA-Public Use
  Company Number: BR-MERCK-0410BRA00157

PATIENT
  Age: 53 Year
  Sex: Female

DRUGS (7)
  1. BROMAZEPAM [Concomitant]
     Route: 048
     Dates: start: 20010101
  2. CILOSTAZOL [Concomitant]
     Route: 048
     Dates: start: 20040101
  3. ENALAPRIL MALEATE [Concomitant]
     Route: 065
     Dates: start: 20010101
  4. HYDROCHLOROTHIAZIDE [Concomitant]
     Route: 065
     Dates: start: 20010101
  5. VIOXX [Suspect]
     Indication: NEPHROLITHIASIS
     Route: 048
     Dates: start: 20010101
  6. VIOXX [Suspect]
     Indication: FRACTURE
     Route: 048
     Dates: start: 20010101
  7. SIMVASTATIN [Concomitant]
     Route: 065
     Dates: start: 20030101

REACTIONS (1)
  - MYOCARDIAL INFARCTION [None]
